FAERS Safety Report 8957547 (Version 2)
Quarter: 2013Q1

REPORT INFORMATION
  Report Type: Spontaneous
  Country: IT (occurrence: IT)
  Receive Date: 20121211
  Receipt Date: 20130207
  Transmission Date: 20140127
  Serious: Yes (Hospitalization)
  Sender: FDA-Public Use
  Company Number: IT-ASTRAZENECA-2012SE91265

PATIENT
  Age: 23676 Day
  Sex: Male

DRUGS (7)
  1. MERREM [Suspect]
     Indication: BACTERIAL SEPSIS
     Dosage: 1000 MG POWDER FOR SOLUTION FOR INJECTABLE SOLUTION INTRAVENOUS USE 3 MG DAILY
     Route: 042
     Dates: start: 20121102, end: 20121121
  2. DAFLON [Concomitant]
     Route: 048
     Dates: start: 20121112, end: 20121125
  3. CITOFOLIN [Concomitant]
     Route: 048
     Dates: start: 20121026, end: 20121125
  4. ZOVIRAX [Concomitant]
     Route: 048
     Dates: start: 20121121, end: 20121125
  5. CUBICIN [Concomitant]
     Indication: BACTERIAL SEPSIS
     Dosage: 500 MG POWDER FOR SOLUTION FOR INFUSION
     Route: 041
     Dates: start: 20121103, end: 20121121
  6. DIFLUCAN [Concomitant]
     Route: 048
     Dates: start: 20121114, end: 20121125
  7. IDROPLURIVIT [Concomitant]
     Route: 048
     Dates: start: 20121026, end: 20121125

REACTIONS (2)
  - Dermatitis [Recovering/Resolving]
  - Eyelid oedema [Recovering/Resolving]
